FAERS Safety Report 5510849-X (Version None)
Quarter: 2007Q4

REPORT INFORMATION
  Report Type: 
  Country: None (occurrence: None)
  Receive Date: 20071107
  Receipt Date: 20071023
  Transmission Date: 20080405
  Serious: Yes (Hospitalization)
  Sender: FDA-Public Use
  Company Number: 17735

PATIENT
  Age: 69 Year
  Sex: Female

DRUGS (3)
  1. CARBOPLATIN [Suspect]
     Indication: NON-SMALL CELL LUNG CANCER
     Dosage: 150 MG FREQ UNK
  2. CARBOPLATIN [Suspect]
     Indication: NON-SMALL CELL LUNG CANCER
     Dosage: 450 MG FREQ UNK
  3. ONXOL [Suspect]
     Indication: NON-SMALL CELL LUNG CANCER

REACTIONS (3)
  - ANGIOPATHY [None]
  - COLITIS ISCHAEMIC [None]
  - GASTROINTESTINAL TOXICITY [None]
